FAERS Safety Report 14413351 (Version 2)
Quarter: 2018Q1

REPORT INFORMATION
  Report Type: Spontaneous
  Country: US (occurrence: US)
  Receive Date: 20180119
  Receipt Date: 20180119
  Transmission Date: 20180509
  Serious: Yes (Hospitalization)
  Sender: FDA-Public Use
  Company Number: PHEH2018US001767

PATIENT
  Sex: Female

DRUGS (4)
  1. METHOTREXATE SODIUM. [Suspect]
     Active Substance: METHOTREXATE SODIUM
     Indication: PSORIASIS
     Route: 065
  2. HUMIRA [Suspect]
     Active Substance: ADALIMUMAB
     Indication: PSORIASIS
     Dosage: UNK
     Route: 058
     Dates: start: 201707, end: 2017
  3. COSENTYX [Suspect]
     Active Substance: SECUKINUMAB
     Indication: PSORIASIS
     Dosage: UNK
     Route: 065
     Dates: start: 2017
  4. CICLOSPORIN [Suspect]
     Active Substance: CYCLOSPORINE
     Indication: PSORIASIS
     Route: 065

REACTIONS (10)
  - Pustular psoriasis [Unknown]
  - Psoriasis [Recovering/Resolving]
  - Throat tightness [Unknown]
  - Rash [Unknown]
  - Onychomadesis [Unknown]
  - Pain in extremity [Unknown]
  - Gait inability [Unknown]
  - Asthenia [Unknown]
  - Skin burning sensation [Unknown]
  - Alopecia [Unknown]

NARRATIVE: CASE EVENT DATE: 2017
